FAERS Safety Report 15250575 (Version 6)
Quarter: 2019Q2

REPORT INFORMATION
  Report Type: Spontaneous
  Country: US (occurrence: US)
  Receive Date: 20180807
  Receipt Date: 20190408
  Transmission Date: 20190711
  Serious: No
  Sender: FDA-Public Use
  Company Number: US-PFIZER INC-2018063962

PATIENT
  Age: 60 Year
  Sex: Female
  Weight: 68.4 kg

DRUGS (2)
  1. EFFEXOR XR [Suspect]
     Active Substance: VENLAFAXINE HYDROCHLORIDE
     Dosage: 300 MG, DAILY (QTY 54/DAYS SUPPLY 27)
  2. EFFEXOR XR [Suspect]
     Active Substance: VENLAFAXINE HYDROCHLORIDE
     Dosage: 300 MG, DAILY (QTY 60 / DAY SUPPLY 30)

REACTIONS (2)
  - Prescribed overdose [Unknown]
  - Irritability [Unknown]
